FAERS Safety Report 4968409-5 (Version None)
Quarter: 2006Q2

REPORT INFORMATION
  Report Type: 
  Country: None (occurrence: None)
  Receive Date: 20060410
  Receipt Date: 20051004
  Transmission Date: 20061013
  Serious: Yes (Hospitalization)
  Sender: FDA-Public Use
  Company Number: US-MERCK-0510USA03518

PATIENT
  Age: 41 Year
  Sex: Female
  Weight: 89 kg

DRUGS (2)
  1. VIOXX [Suspect]
     Indication: ABDOMINAL PAIN
     Route: 048
     Dates: start: 20010401, end: 20010901
  2. VIOXX [Suspect]
     Indication: MUSCLE SPASMS
     Route: 048
     Dates: start: 20010401, end: 20010901

REACTIONS (2)
  - CARDIOVASCULAR DISORDER [None]
  - THROMBOSIS [None]
